FAERS Safety Report 12694603 (Version 3)
Quarter: 2017Q4

REPORT INFORMATION
  Report Type: Spontaneous
  Country: IE (occurrence: IE)
  Receive Date: 20160829
  Receipt Date: 20171213
  Transmission Date: 20180320
  Serious: Yes (Life-Threatening, Other)
  Sender: FDA-Public Use
  Company Number: IE-JNJFOC-20160813214

PATIENT
  Age: 13 Year
  Sex: Male

DRUGS (8)
  1. CETIRIZINE [Concomitant]
     Active Substance: CETIRIZINE HYDROCHLORIDE
     Indication: ANTIALLERGIC THERAPY
     Dosage: RARELY
     Route: 048
  2. IBUPROFEN. [Suspect]
     Active Substance: IBUPROFEN
     Indication: DENTAL CARE
     Route: 048
  3. BECLOMETHASONE [Concomitant]
     Active Substance: BECLOMETHASONE
     Indication: ASTHMA
     Dosage: 100 LG TWO PUFFS
     Route: 055
  4. IBUPROFEN. [Suspect]
     Active Substance: IBUPROFEN
     Indication: DENTAL CARE
     Dosage: 100TH OF AN AGE APPROPRIATE DOSE OF IBUPROFEN
     Route: 048
  5. LIGNOSPAN SPECIAL [Suspect]
     Active Substance: EPINEPHRINE BITARTRATE\LIDOCAINE HYDROCHLORIDE
     Indication: DENTAL CARE
     Dosage: 20 MG LIDOCAINE HYDROCHLORIDE/12.5 UG ADRENALINE PER ML
     Route: 065
  6. SALBUTAMOL [Concomitant]
     Active Substance: ALBUTEROL
     Indication: ASTHMA
     Dosage: 100 LG TWO PUFFS??VIA INHALER (WHEN NEEDED)
     Route: 055
  7. IBUPROFEN. [Suspect]
     Active Substance: IBUPROFEN
     Indication: ANALGESIC THERAPY
     Route: 048
  8. IBUPROFEN. [Suspect]
     Active Substance: IBUPROFEN
     Indication: ANALGESIC THERAPY
     Dosage: 100TH OF AN AGE APPROPRIATE DOSE OF IBUPROFEN
     Route: 048

REACTIONS (14)
  - Lip oedema [Recovered/Resolved]
  - Throat tightness [Recovered/Resolved]
  - Flushing [Recovered/Resolved]
  - Off label use [Recovered/Resolved]
  - Aspirin-exacerbated respiratory disease [Recovered/Resolved]
  - Rhinorrhoea [Recovered/Resolved]
  - Angioedema [Recovered/Resolved]
  - Periorbital oedema [Recovered/Resolved]
  - Conjunctivitis [Recovered/Resolved]
  - Wheezing [Recovered/Resolved]
  - Chest discomfort [Recovered/Resolved]
  - Paraesthesia oral [Recovered/Resolved]
  - Product use in unapproved indication [Recovered/Resolved]
  - Drug hypersensitivity [Recovered/Resolved]
